FAERS Safety Report 18283615 (Version 2)
Quarter: 2021Q1

REPORT INFORMATION
  Report Type: Spontaneous
  Country: JP (occurrence: JP)
  Receive Date: 20200918
  Receipt Date: 20210331
  Transmission Date: 20210419
  Serious: Yes (Other)
  Sender: FDA-Public Use
  Company Number: JP-ELI_LILLY_AND_COMPANY-JP202009004739

PATIENT
  Age: 66 Year
  Sex: Female
  Weight: 48 kg

DRUGS (28)
  1. UPTRAVI [Suspect]
     Active Substance: SELEXIPAG
     Indication: PULMONARY ARTERIAL HYPERTENSION
     Dosage: 0.2 MG, BID
     Route: 048
     Dates: start: 20170328, end: 20170410
  2. UPTRAVI [Suspect]
     Active Substance: SELEXIPAG
     Dosage: 0.4 MG, BID
     Route: 048
     Dates: start: 20170411, end: 20170424
  3. UPTRAVI [Suspect]
     Active Substance: SELEXIPAG
     Dosage: 1.0 MG, BID
     Route: 048
     Dates: start: 20170620, end: 20170703
  4. PREDNISOLONE. [Concomitant]
     Active Substance: PREDNISOLONE
     Indication: RHEUMATOID ARTHRITIS
     Dosage: 2 MG, UNKNOWN
     Route: 065
  5. OPSUMIT [Concomitant]
     Active Substance: MACITENTAN
     Indication: PULMONARY ARTERIAL HYPERTENSION
     Dosage: 10 MG, UNKNOWN
     Route: 065
  6. METOCLOPRAMIDE. [Concomitant]
     Active Substance: METOCLOPRAMIDE
     Indication: NAUSEA
     Dosage: 20 MG, UNKNOWN
     Route: 065
     Dates: start: 20170328, end: 20170411
  7. LAC B [Concomitant]
     Active Substance: BIFIDOBACTERIUM SPP.
     Indication: DIARRHOEA
     Dosage: 3 G, UNKNOWN
     Route: 065
     Dates: start: 20160311
  8. HYALEIN MINI [Concomitant]
     Active Substance: HYALURONATE SODIUM
     Indication: SJOGREN^S SYNDROME
     Dosage: UNK, UNKNOWN
     Route: 065
  9. UPTRAVI [Suspect]
     Active Substance: SELEXIPAG
     Dosage: 1.8 MG, BID
     Route: 048
     Dates: start: 20171212
  10. NEXIUM [Concomitant]
     Active Substance: ESOMEPRAZOLE MAGNESIUM
     Indication: GASTROOESOPHAGEAL REFLUX DISEASE
     Dosage: 20 MG, UNKNOWN
     Route: 065
  11. FOLIAMIN [Concomitant]
     Active Substance: FOLIC ACID
     Indication: FOLATE DEFICIENCY
     Dosage: 5 MG, UNKNOWN
     Route: 065
  12. KETOPROFEN. [Concomitant]
     Active Substance: KETOPROFEN
     Indication: PERIARTHRITIS
     Dosage: 1 DOSAGE FORM, UNKNOWN
     Route: 065
  13. ADCIRCA [Suspect]
     Active Substance: TADALAFIL
     Indication: PULMONARY ARTERIAL HYPERTENSION
     Dosage: 40 MG, DAILY
     Route: 065
  14. NIFEDIPIN [Concomitant]
     Active Substance: NIFEDIPINE
     Indication: HYPERTENSION
     Dosage: 20 MG, UNKNOWN
     Route: 065
  15. LEVOFLOXACIN HEMIHYDRATE [Concomitant]
     Active Substance: LEVOFLOXACIN
     Indication: PRODUCT USED FOR UNKNOWN INDICATION
     Dosage: 500 MG, UNKNOWN
     Route: 065
     Dates: start: 20180626, end: 20180701
  16. UPTRAVI [Suspect]
     Active Substance: SELEXIPAG
     Dosage: 0.8 MG, BID
     Route: 048
     Dates: start: 20170509, end: 20170619
  17. WARFARIN [WARFARIN POTASSIUM] [Concomitant]
     Active Substance: WARFARIN POTASSIUM
     Indication: PRODUCT USED FOR UNKNOWN INDICATION
     Dosage: 3.5 MG, UNKNOWN
     Route: 065
     Dates: end: 20170718
  18. EDIROL [Concomitant]
     Active Substance: ELDECALCITOL
     Indication: OSTEOPOROSIS
     Dosage: UNK, UNKNOWN
     Route: 065
     Dates: start: 20171117
  19. URSO [Concomitant]
     Active Substance: URSODIOL
     Indication: PRIMARY BILIARY CHOLANGITIS
     Dosage: 400 MG, UNKNOWN
     Route: 065
  20. KANAMYCIN MONOSULFATE [Concomitant]
     Indication: PRODUCT USED FOR UNKNOWN INDICATION
     Dosage: 750 MG, UNKNOWN
     Route: 065
     Dates: start: 20180904, end: 20180925
  21. UPTRAVI [Suspect]
     Active Substance: SELEXIPAG
     Dosage: 0.8 MG, BID
     Route: 048
     Dates: start: 20170704, end: 20171211
  22. RHEUMATREX [Concomitant]
     Active Substance: METHOTREXATE SODIUM
     Indication: RHEUMATOID ARTHRITIS
     Dosage: 6 MG, UNKNOWN
     Route: 065
  23. PRALIA [Suspect]
     Active Substance: DENOSUMAB
     Indication: PRODUCT USED FOR UNKNOWN INDICATION
     Dosage: 60 MG, UNKNOWN
     Route: 065
     Dates: start: 20180608, end: 20180608
  24. PRALIA [Suspect]
     Active Substance: DENOSUMAB
     Dosage: 60 MG, UNKNOWN
     Route: 065
     Dates: start: 20181220, end: 20181220
  25. UPTRAVI [Suspect]
     Active Substance: SELEXIPAG
     Dosage: 0.6 MG, BID
     Route: 048
     Dates: start: 20170425, end: 20170508
  26. MUCOSTA [Concomitant]
     Active Substance: REBAMIPIDE
     Indication: SJOGREN^S SYNDROME
     Dosage: UNK, UNKNOWN
     Route: 065
  27. ALFAROL [Concomitant]
     Active Substance: ALFACALCIDOL
     Indication: OSTEOPOROSIS
     Dosage: 0.5 UG, UNKNOWN
     Route: 065
     Dates: end: 20171116
  28. NIFLEC [POTASSIUM CHLORIDE;SODIUM BICARBONATE [Concomitant]
     Indication: ENDOSCOPY GASTROINTESTINAL
     Dosage: 2 L, UNKNOWN
     Route: 065
     Dates: start: 20180807, end: 20180807

REACTIONS (13)
  - Diarrhoea [Recovering/Resolving]
  - Colitis [Recovering/Resolving]
  - Periodontitis [Recovered/Resolved]
  - Diarrhoea [Recovered/Resolved]
  - Diarrhoea [Recovered/Resolved]
  - Cardiac failure [Not Recovered/Not Resolved]
  - Retinal haemorrhage [Recovered/Resolved]
  - Dermatophytosis of nail [Not Recovered/Not Resolved]
  - Eczema [Recovered/Resolved]
  - Platelet count decreased [Recovered/Resolved]
  - Blepharitis [Recovering/Resolving]
  - Posterior capsule opacification [Recovering/Resolving]
  - Rhinitis [Recovered/Resolved]

NARRATIVE: CASE EVENT DATE: 20170328
